FAERS Safety Report 7483287-0 (Version None)
Quarter: 2011Q2

REPORT INFORMATION
  Report Type: 
  Country: None (occurrence: None)
  Receive Date: 20110509
  Receipt Date: 20110419
  Transmission Date: 20111010
  Serious: Yes (Other)
  Sender: FDA-Public Use
  Company Number: CIO11000795

PATIENT
  Age: 77 Year
  Sex: Female
  Weight: 62.1 kg

DRUGS (11)
  1. SYNTHROID [Concomitant]
  2. VITAMINS /90003601 / [Concomitant]
  3. LORTADINE (LORATADINE) [Concomitant]
  4. ASPIRIN [Concomitant]
  5. PREMARI  /00073001/ (ESTROGENS CONJUGATED) [Concomitant]
  6. VITAMIN B-12 [Concomitant]
  7. METAMUCIL-2 [Suspect]
     Indication: NUTRITIONAL SUPPORT
     Dosage: 1 TSP, 1 /DAY, ORAL
     Route: 048
     Dates: start: 20110108, end: 20110110
  8. EYE DROP [Concomitant]
  9. CALTRATE PLUS /01438001/(CALCIUM, COLECALCIFEROL, COPPER, MAGNESIUM, M [Suspect]
     Dosage: 1 TSP, 1 /DAY, ORAL
     Route: 048
     Dates: start: 20041213
  10. CALCIUM (CALCIUM) [Concomitant]
  11. TYLENOL /00020001/ (PARACETAMOL) [Concomitant]

REACTIONS (16)
  - SUPRAVENTRICULAR TACHYCARDIA [None]
  - DYSPNOEA [None]
  - LYMPHOCYTE COUNT DECREASED [None]
  - NEUTROPHIL COUNT INCREASED [None]
  - ALANINE AMINOTRANSFERASE DECREASED [None]
  - CHEST PAIN [None]
  - FOREIGN BODY [None]
  - QRS AXIS ABNORMAL [None]
  - ASTHENIA [None]
  - ERUCTATION [None]
  - SINUS TACHYCARDIA [None]
  - ATRIOVENTRICULAR BLOCK FIRST DEGREE [None]
  - NAUSEA [None]
  - CHEST DISCOMFORT [None]
  - URINE LEUKOCYTE ESTERASE POSITIVE [None]
  - BLOOD PRESSURE SYSTOLIC DECREASED [None]
